FAERS Safety Report 22049181 (Version 1)
Quarter: 2023Q1

REPORT INFORMATION
  Report Type: Spontaneous
  Country: CN (occurrence: None)
  Receive Date: 20230301
  Receipt Date: 20230301
  Transmission Date: 20230417
  Serious: Yes (Other)
  Sender: FDA-Public Use
  Company Number: CN-ROCHE-3292453

PATIENT
  Age: 55 Year
  Sex: Female
  Weight: 62 kg

DRUGS (9)
  1. HERCEPTIN [Suspect]
     Active Substance: TRASTUZUMAB
     Indication: Breast cancer metastatic
     Dosage: 464 MG FIRST, 348 MG MAINTENANCE
     Route: 065
     Dates: start: 20201028, end: 20210301
  2. HERCEPTIN [Suspect]
     Active Substance: TRASTUZUMAB
     Dosage: HP
     Route: 065
     Dates: start: 20210326
  3. PERJETA [Suspect]
     Active Substance: PERTUZUMAB
     Indication: Breast cancer metastatic
     Dosage: 840 MG FIRST, 420 MG MAINTENANCE
     Route: 065
     Dates: start: 20201028, end: 20210301
  4. PERJETA [Suspect]
     Active Substance: PERTUZUMAB
     Dosage: HP
     Route: 065
     Dates: start: 20210326
  5. XELODA [Suspect]
     Active Substance: CAPECITABINE
     Indication: Breast cancer metastatic
     Dosage: DAY1-14
     Route: 048
     Dates: start: 20220613
  6. FULVESTRANT [Concomitant]
     Active Substance: FULVESTRANT
  7. ZOLEDRONIC ACID [Concomitant]
     Active Substance: ZOLEDRONIC ACID
  8. PYROTINIB [Concomitant]
     Active Substance: PYROTINIB
     Dates: start: 20220613
  9. PACLITAXEL [Concomitant]
     Active Substance: PACLITAXEL
     Dosage: (ALBUMIN BOUND)
     Dates: start: 20201028, end: 20210301

REACTIONS (1)
  - Osteomyelitis [Unknown]

NARRATIVE: CASE EVENT DATE: 20220913
